FAERS Safety Report 7796737-7 (Version None)
Quarter: 2011Q4

REPORT INFORMATION
  Report Type: 
  Country: None (occurrence: None)
  Receive Date: 20111003
  Receipt Date: 20110926
  Transmission Date: 20120403
  Serious: Yes (Hospitalization, Other)
  Sender: FDA-Public Use
  Company Number: JPI-P-012185

PATIENT
  Age: 78 Year
  Sex: Female
  Weight: 80.2867 kg

DRUGS (5)
  1. CLOMIPRAMIDE [Concomitant]
  2. XYREM [Suspect]
     Indication: CATAPLEXY
     Dosage: 7.5 GM (3.75 GM, 2 IN 1 D), ORAL; (TITRATING DOSE),ORAL; 9 GM (4.5 GM, 2 IN 1 D) , ORAL
     Route: 048
     Dates: start: 20091028, end: 20110905
  3. XYREM [Suspect]
     Indication: CATAPLEXY
     Dosage: 7.5 GM (3.75 GM, 2 IN 1 D), ORAL; (TITRATING DOSE),ORAL; 9 GM (4.5 GM, 2 IN 1 D) , ORAL
     Route: 048
     Dates: start: 20021003
  4. LEVOTHYROXINE SODIUM [Concomitant]
  5. SERTRALINE HYDROCHLORIDE [Concomitant]

REACTIONS (14)
  - WEIGHT DECREASED [None]
  - INTERVERTEBRAL DISC PROTRUSION [None]
  - ARTHRITIS [None]
  - TREMOR [None]
  - URINARY TRACT INFECTION STAPHYLOCOCCAL [None]
  - DISEASE RECURRENCE [None]
  - STAPHYLOCOCCAL INFECTION [None]
  - THYROID NEOPLASM [None]
  - DEMENTIA [None]
  - CONDITION AGGRAVATED [None]
  - HALLUCINATIONS, MIXED [None]
  - SEPSIS [None]
  - MUSCULAR WEAKNESS [None]
  - ARTHRITIS INFECTIVE [None]
